FAERS Safety Report 6726587-1 (Version None)
Quarter: 2010Q2

REPORT INFORMATION
  Report Type: 
  Country: None (occurrence: None)
  Receive Date: 20100514
  Receipt Date: 20100504
  Transmission Date: 20101027
  Serious: Yes (Death)
  Sender: FDA-Public Use
  Company Number: AU-ELI_LILLY_AND_COMPANY-AU201005000978

PATIENT
  Age: 42 Year
  Sex: Female

DRUGS (5)
  1. FLUOXETINE [Suspect]
     Dosage: UNK, UNKNOWN
  2. MIRTAZAPINE [Concomitant]
     Dosage: UNK, UNKNOWN
  3. VALPROIC ACID [Concomitant]
     Dosage: UNK, UNKNOWN
  4. MORPHINE [Concomitant]
     Dosage: UNK, UNKNOWN
  5. CODEINE SULFATE [Concomitant]
     Dosage: UNK, UNKNOWN

REACTIONS (5)
  - ANTIDEPRESSANT DRUG LEVEL ABOVE THERAPEUTIC [None]
  - DRUG TOXICITY [None]
  - HEPATIC STEATOSIS [None]
  - NEPHROSCLEROSIS [None]
  - OBESITY [None]
